FAERS Safety Report 18333894 (Version 1)
Quarter: 2020Q3

REPORT INFORMATION
  Report Type: Spontaneous
  Country: US (occurrence: US)
  Receive Date: 20200930
  Receipt Date: 20200930
  Transmission Date: 20201103
  Serious: Yes (Disabling)
  Sender: FDA-Public Use
  Company Number: None

PATIENT
  Age: 54 Year
  Sex: Male
  Weight: 94.5 kg

DRUGS (8)
  1. PENICILLIN?VK [Suspect]
     Active Substance: PENICILLIN V POTASSIUM
     Indication: GINGIVITIS
     Dosage: ?          QUANTITY:40 TABLET(S);?
     Route: 048
  2. MINOXIDIL. [Concomitant]
     Active Substance: MINOXIDIL
  3. FINASTERDE [Concomitant]
  4. VITAMIN D3 [Concomitant]
     Active Substance: CHOLECALCIFEROL
  5. VITAMIN B12 [Concomitant]
     Active Substance: CYANOCOBALAMIN
  6. VITAMIN C [Concomitant]
     Active Substance: ASCORBIC ACID
  7. OMEPRAZOLE. [Concomitant]
     Active Substance: OMEPRAZOLE
  8. IRON [Concomitant]
     Active Substance: IRON

REACTIONS (2)
  - Pain [None]
  - Asthenia [None]

NARRATIVE: CASE EVENT DATE: 20200930
